FAERS Safety Report 19060904 (Version 2)
Quarter: 2021Q2

REPORT INFORMATION
  Report Type: Report from Study
  Country: CN (occurrence: CN)
  Receive Date: 20210325
  Receipt Date: 20210415
  Transmission Date: 20210717
  Serious: Yes (Other)
  Sender: FDA-Public Use
  Company Number: CN-VIIV HEALTHCARE LIMITED-CN2021GSK069236

PATIENT
  Age: 37 Year
  Sex: Male

DRUGS (11)
  1. ENTECAVIR. [Suspect]
     Active Substance: ENTECAVIR
     Indication: CHRONIC HEPATITIS C
     Dosage: UNK
     Dates: start: 200801, end: 200905
  2. ADEFOVIR DIPIVOXIL. [Suspect]
     Active Substance: ADEFOVIR DIPIVOXIL
     Indication: CHRONIC HEPATITIS C
     Dosage: UNK
     Dates: start: 200511, end: 200602
  3. LAMIVUDINE. [Suspect]
     Active Substance: LAMIVUDINE
     Dosage: UNK
     Dates: start: 200511, end: 200602
  4. ENTECAVIR. [Suspect]
     Active Substance: ENTECAVIR
     Dosage: UNK
     Dates: start: 201105, end: 201206
  5. ADEFOVIR DIPIVOXIL. [Suspect]
     Active Substance: ADEFOVIR DIPIVOXIL
     Dosage: UNK
     Dates: start: 201002, end: 201006
  6. ADEFOVIR DIPIVOXIL. [Suspect]
     Active Substance: ADEFOVIR DIPIVOXIL
     Dosage: UNK
     Dates: start: 201006, end: 201105
  7. ADEFOVIR DIPIVOXIL. [Suspect]
     Active Substance: ADEFOVIR DIPIVOXIL
     Dosage: UNK
     Dates: start: 201105, end: 201206
  8. ADEFOVIR DIPIVOXIL. [Suspect]
     Active Substance: ADEFOVIR DIPIVOXIL
     Dosage: UNK
     Dates: start: 200602, end: 200709
  9. TELBIVUDINE [Concomitant]
     Active Substance: TELBIVUDINE
     Indication: CHRONIC HEPATITIS C
     Dosage: UNK
     Dates: start: 200709, end: 200801
  10. LAMIVUDINE. [Suspect]
     Active Substance: LAMIVUDINE
     Indication: CHRONIC HEPATITIS C
     Dosage: UNK
     Dates: start: 200311, end: 200511
  11. ENTECAVIR. [Suspect]
     Active Substance: ENTECAVIR
     Dosage: UNK
     Dates: start: 201206, end: 201512

REACTIONS (4)
  - Pathogen resistance [Unknown]
  - Multiple-drug resistance [Unknown]
  - Therapeutic product effect incomplete [Unknown]
  - Viral mutation identified [Unknown]
